FAERS Safety Report 26065765 (Version 1)
Quarter: 2025Q4

REPORT INFORMATION
  Report Type: Report from Study
  Country: EU (occurrence: EU)
  Receive Date: 20251119
  Receipt Date: 20251119
  Transmission Date: 20260118
  Serious: Yes (Hospitalization)
  Sender: ABBVIE
  Company Number: EU-ABBVIE-6231583

PATIENT
  Sex: Male

DRUGS (1)
  1. FOSCARBIDOPA\FOSLEVODOPA [Suspect]
     Active Substance: FOSCARBIDOPA\FOSLEVODOPA
     Indication: Parkinson^s disease
     Dosage: CRN: 0.36 ML/H, CR: 0.40 ML/H, CRH: 0.45 ML/H, ED: 0.15 ML
     Route: 058
     Dates: start: 20240724

REACTIONS (6)
  - Emergency care [Unknown]
  - Asthenia [Not Recovered/Not Resolved]
  - Nasopharyngitis [Not Recovered/Not Resolved]
  - Oedema peripheral [Unknown]
  - General physical health deterioration [Unknown]
  - On and off phenomenon [Not Recovered/Not Resolved]
